FAERS Safety Report 7461199-6 (Version None)
Quarter: 2011Q2

REPORT INFORMATION
  Report Type: 
  Country: None (occurrence: None)
  Receive Date: 20110505
  Receipt Date: 20110426
  Transmission Date: 20111010
  Serious: Yes (Hospitalization)
  Sender: FDA-Public Use
  Company Number: DE-ASTRAZENECA-2011SE24539

PATIENT
  Age: 19 Year
  Sex: Female

DRUGS (2)
  1. BUPIVACAINE HCL [Suspect]
     Indication: FOOT DEFORMITY
     Route: 053
  2. PRILOCAINE HYDROCHLORIDE [Suspect]
     Indication: FOOT DEFORMITY
     Route: 053

REACTIONS (2)
  - OVERDOSE [None]
  - METHAEMOGLOBINAEMIA [None]
